FAERS Safety Report 9856200 (Version 2)
Quarter: 2014Q1

REPORT INFORMATION
  Report Type: Spontaneous
  Country: CH (occurrence: CH)
  Receive Date: 20140130
  Receipt Date: 20140211
  Transmission Date: 20141002
  Serious: Yes (Life-Threatening, Hospitalization)
  Sender: FDA-Public Use
  Company Number: CH-009507513-1401CHE010508

PATIENT
  Age: 41 Year
  Sex: Male

DRUGS (3)
  1. REMERON [Suspect]
     Indication: PRODUCT USED FOR UNKNOWN INDICATION
     Dosage: UNK
     Route: 048
     Dates: start: 20140105, end: 20140105
  2. ALCOHOL [Suspect]
     Indication: PRODUCT USED FOR UNKNOWN INDICATION
     Dosage: UNK
     Route: 048
     Dates: end: 20140105
  3. ISOPROPYL ALCOHOL [Suspect]
     Indication: PRODUCT USED FOR UNKNOWN INDICATION
     Dosage: UNK
     Route: 061
     Dates: start: 20140105, end: 20140106

REACTIONS (6)
  - Intentional overdose [Recovered/Resolved]
  - Aspiration [Recovered/Resolved]
  - Hypoxia [Recovered/Resolved]
  - Blood lactic acid increased [Unknown]
  - Somnolence [Recovered/Resolved]
  - Urticaria [Unknown]
